FAERS Safety Report 10386923 (Version 1)
Quarter: 2014Q1

REPORT INFORMATION
  Report Type: Spontaneous
  Country: US (occurrence: None)
  Receive Date: 20140306
  Receipt Date: 20140306
  Transmission Date: 20141002
  Serious: Yes (Life-Threatening, Hospitalization, Other)
  Sender: FDA-Public Use
  Company Number: 163-21880-13093563

PATIENT
  Age: 83 Year
  Sex: Male

DRUGS (7)
  1. REVLIMID (LENALIDOMIDE) (10 MILLIGRAM, CAPSULES) [Suspect]
     Indication: PLASMA CELL MYELOMA
     Dosage: 21 IN 21 D
     Route: 048
     Dates: start: 20130109, end: 20130911
  2. ALLEGRA (FEXOFENADINE HYDROCHLORIDE) [Concomitant]
  3. WARFARIN [Concomitant]
  4. LEVOTHYROXINE [Concomitant]
  5. LOSARTAN [Concomitant]
  6. TAMSULOSIN [Concomitant]
  7. VESICARE (SOLIFENACIN SUCCINATE) [Concomitant]

REACTIONS (2)
  - Renal failure chronic [None]
  - Urosepsis [None]
